FAERS Safety Report 22100629 (Version 4)
Quarter: 2023Q4

REPORT INFORMATION
  Report Type: Report from Study
  Country: US (occurrence: US)
  Receive Date: 20230316
  Receipt Date: 20231110
  Transmission Date: 20240109
  Serious: Yes (Other)
  Sender: FDA-Public Use
  Company Number: US-ABBVIE-4341531

PATIENT
  Age: 75 Year
  Sex: Female

DRUGS (2)
  1. HUMIRA [Suspect]
     Active Substance: ADALIMUMAB
     Indication: Rheumatoid arthritis
     Route: 058
     Dates: start: 20020801
  2. HUMIRA [Suspect]
     Active Substance: ADALIMUMAB
     Dates: start: 20180813

REACTIONS (5)
  - Papule [Unknown]
  - COVID-19 [Unknown]
  - Skin cancer [Recovering/Resolving]
  - Pain [Not Recovered/Not Resolved]
  - Scab [Unknown]

NARRATIVE: CASE EVENT DATE: 20131109
